FAERS Safety Report 5261247-8 (Version None)
Quarter: 2007Q1

REPORT INFORMATION
  Report Type: 
  Country: None (occurrence: None)
  Receive Date: 20070309
  Receipt Date: 20070227
  Transmission Date: 20070707
  Serious: Yes (Other)
  Sender: FDA-Public Use
  Company Number: US-PFIZER INC-2007016386

PATIENT
  Sex: Male
  Weight: 113.4 kg

DRUGS (12)
  1. SUTENT [Suspect]
     Indication: METASTATIC RENAL CELL CARCINOMA
  2. AVANDIA [Concomitant]
  3. ZOCOR [Concomitant]
  4. GLIMEPIRIDE [Concomitant]
  5. AMBIEN [Concomitant]
  6. TRAMADOL HCL [Concomitant]
  7. DILANTIN [Concomitant]
  8. PRILOSEC [Concomitant]
  9. AVODART [Concomitant]
  10. ATENOLOL [Concomitant]
  11. HYDROCHLOROTHIAZIDE [Concomitant]
  12. DECADRON [Concomitant]

REACTIONS (3)
  - HAEMOGLOBIN DECREASED [None]
  - PAPILLOEDEMA [None]
  - PLATELET COUNT DECREASED [None]
